FAERS Safety Report 9541387 (Version 1)
Quarter: 2013Q3

REPORT INFORMATION
  Report Type: Spontaneous
  Country: US (occurrence: None)
  Receive Date: 20130919
  Receipt Date: 20130919
  Transmission Date: 20140515
  Serious: Yes (Death)
  Sender: FDA-Public Use
  Company Number: None

PATIENT
  Age: 73 Year
  Sex: Male
  Weight: 117.03 kg

DRUGS (10)
  1. NAPROXEN [Suspect]
     Indication: BACK PAIN
     Dosage: 500MG BID 2X^S PO
     Route: 048
     Dates: start: 20120430, end: 20120513
  2. TAMSULOSIN [Concomitant]
  3. WARFARIN [Concomitant]
  4. SIMVASTIN [Concomitant]
  5. GLIPIZIDE [Concomitant]
  6. PLAVIX [Concomitant]
  7. ASA [Concomitant]
  8. CARVEDILOL [Concomitant]
  9. HYDROCODONE/ACETAMINOPHEN [Concomitant]
  10. INSULIN [Concomitant]

REACTIONS (2)
  - Rectal haemorrhage [None]
  - Loss of consciousness [None]
